FAERS Safety Report 26180031 (Version 1)
Quarter: 2025Q4

REPORT INFORMATION
  Report Type: Spontaneous
  Country: US (occurrence: US)
  Receive Date: 20251219
  Receipt Date: 20251219
  Transmission Date: 20260117
  Serious: No
  Sender: ITALFARMACO
  Company Number: US-ITF-2025-003681

PATIENT

DRUGS (1)
  1. DUVYZAT [Suspect]
     Active Substance: GIVINOSTAT

REACTIONS (2)
  - Abdominal pain [Unknown]
  - Diarrhoea [Unknown]
